FAERS Safety Report 19243840 (Version 3)
Quarter: 2021Q2

REPORT INFORMATION
  Report Type: Report from Study
  Country: None (occurrence: IL)
  Receive Date: 20210511
  Receipt Date: 20210604
  Transmission Date: 20210717
  Serious: Yes (Other)
  Sender: FDA-Public Use
  Company Number: IL-ABBVIE-19K-082-2985883-00

PATIENT
  Age: 77 Year
  Sex: Female
  Weight: 72 kg

DRUGS (22)
  1. NEXIUM [Concomitant]
     Active Substance: ESOMEPRAZOLE MAGNESIUM
     Indication: PROPHYLAXIS AGAINST GASTROINTESTINAL ULCER
     Dates: start: 20190118
  2. COVID?19 VACCINE NOS. [Concomitant]
     Active Substance: COVID-19 VACCINE NOS
     Route: 030
     Dates: start: 20210128, end: 20210128
  3. VENCLEXTA [Suspect]
     Active Substance: VENETOCLAX
     Route: 048
     Dates: start: 20191010, end: 20191117
  4. VENCLEXTA [Suspect]
     Active Substance: VENETOCLAX
     Route: 048
     Dates: start: 20191118
  5. LOSARDEX [Concomitant]
     Active Substance: LOSARTAN POTASSIUM
     Indication: CARDIAC DISORDER
     Dates: start: 20191219
  6. VENCLEXTA [Suspect]
     Active Substance: VENETOCLAX
     Dosage: PER TITRATION SCHEME THEN DOSE INCREASE
     Route: 048
     Dates: start: 20191002, end: 20191009
  7. ALLOPURINOL. [Concomitant]
     Active Substance: ALLOPURINOL
     Indication: PROPHYLAXIS
     Dates: start: 20190902
  8. CODEINE PHOSPHATE [Concomitant]
     Active Substance: CODEINE PHOSPHATE
     Indication: PAIN
     Dates: start: 20191201
  9. FUSID [Concomitant]
     Indication: CARDIOVASCULAR EVENT PROPHYLAXIS
     Dates: start: 20190206
  10. PRADAXA [Concomitant]
     Active Substance: DABIGATRAN ETEXILATE MESYLATE
     Indication: THROMBOSIS PROPHYLAXIS
  11. VENCLEXTA [Suspect]
     Active Substance: VENETOCLAX
     Indication: CHRONIC LYMPHOCYTIC LEUKAEMIA
     Dosage: PER TITRATION SCHEME THEN DOSE INCREASE
     Route: 048
     Dates: start: 20190909, end: 20190914
  12. HYDRATION VITAMIN [Concomitant]
     Route: 042
     Dates: start: 20190922
  13. PRADAXA [Concomitant]
     Active Substance: DABIGATRAN ETEXILATE MESYLATE
     Indication: CEREBROVASCULAR ACCIDENT PROPHYLAXIS
     Dates: start: 20190118
  14. DIGOXIN. [Concomitant]
     Active Substance: DIGOXIN
     Indication: CARDIAC DISORDER
     Dates: start: 2017
  15. HYDRATION VITAMIN [Concomitant]
     Route: 042
     Dates: start: 20191002
  16. RECITAL [Concomitant]
     Indication: PROPHYLAXIS
     Dates: start: 20190118
  17. VENCLEXTA [Suspect]
     Active Substance: VENETOCLAX
     Dosage: PER TITRATION SCHEME THEN DOSE INCREASE
     Route: 048
     Dates: start: 20190915, end: 20190921
  18. VENCLEXTA [Suspect]
     Active Substance: VENETOCLAX
     Dosage: PER TITRATION SCHEME THEN DOSE INCREASE
     Route: 048
     Dates: start: 20190922, end: 20191001
  19. HYDRATION VITAMIN [Concomitant]
     Indication: PRODUCT USED FOR UNKNOWN INDICATION
     Route: 042
     Dates: start: 20190909
  20. HYDRATION VITAMIN [Concomitant]
     Route: 042
     Dates: start: 20190915
  21. BISOPROLOL FUMARATE. [Concomitant]
     Active Substance: BISOPROLOL FUMARATE
     Indication: HYPERTENSION
  22. COVID?19 VACCINE NOS. [Concomitant]
     Active Substance: COVID-19 VACCINE NOS
     Indication: COVID-19 IMMUNISATION
     Route: 030
     Dates: start: 20210107, end: 20210107

REACTIONS (10)
  - Iron deficiency anaemia [Recovered/Resolved]
  - Neutrophil count decreased [Recovered/Resolved]
  - Humerus fracture [Recovered/Resolved]
  - Neutrophil count decreased [Recovered/Resolved]
  - Nausea [Recovered/Resolved]
  - Neutrophil count decreased [Recovered/Resolved]
  - Nausea [Recovered/Resolved]
  - Neutrophil count decreased [Recovered/Resolved]
  - Stridor [Recovered/Resolved]
  - Headache [Recovered/Resolved]

NARRATIVE: CASE EVENT DATE: 20190912
